FAERS Safety Report 17057842 (Version 1)
Quarter: 2019Q4

REPORT INFORMATION
  Report Type: Spontaneous
  Country: US (occurrence: US)
  Receive Date: 20191120
  Receipt Date: 20191120
  Transmission Date: 20200122
  Serious: No
  Sender: FDA-Public Use
  Company Number: None

PATIENT
  Age: 5 Year
  Sex: Male
  Weight: 18 kg

DRUGS (1)
  1. MIRALAX [Suspect]
     Active Substance: POLYETHYLENE GLYCOL 3350
     Indication: CONSTIPATION
     Dosage: ?          QUANTITY:1 CAPSULE(S);?
     Route: 048
     Dates: start: 20190823, end: 20191021

REACTIONS (3)
  - Abnormal behaviour [None]
  - Anger [None]
  - Aggression [None]

NARRATIVE: CASE EVENT DATE: 20190915
